FAERS Safety Report 8465068 (Version 2)
Quarter: 2013Q2

REPORT INFORMATION
  Report Type: Spontaneous
  Country: US (occurrence: None)
  Receive Date: 20120227
  Receipt Date: 20120525
  Transmission Date: 20140414
  Serious: No
  Sender: FDA-Public Use
  Company Number: 343603

PATIENT
  Age: 76 Year
  Sex: Female

DRUGS (3)
  1. VICTOZA [Suspect]
     Indication: TYPE 2 DIABETES MELLITUS
     Dosage: 0.6 MG,QD, SUBCUTANEOUS
     Route: 058
  2. VICTOZA [Suspect]
     Dosage: 0.3 MG, QD, SUBCUTANEOUS
     Route: 058
  3. VICTOZA [Suspect]
     Dosage: 0.6 MG, QD, SUBCUTANEOUS
     Route: 058

REACTIONS (3)
  - ABDOMINAL DISCOMFORT [None]
  - GASTROOESOPHAGEAL REFLUX DISEASE [None]
  - ERUCTATION [None]
